FAERS Safety Report 8963231 (Version 5)
Quarter: 2014Q1

REPORT INFORMATION
  Report Type: Report from Study
  Country: JP (occurrence: JP)
  Receive Date: 20121214
  Receipt Date: 20140128
  Transmission Date: 20141002
  Serious: Yes (Other)
  Sender: FDA-Public Use
  Company Number: JP-VERTEX PHARMACEUTICALS INC.-2012-026080

PATIENT
  Age: 60 Year
  Sex: Male

DRUGS (25)
  1. VX-950 (TELAPREVIR) [Suspect]
     Indication: CHRONIC HEPATITIS C
     Dosage: 2250 MG, QD
     Route: 048
     Dates: start: 20120828, end: 20120904
  2. VX-950 (TELAPREVIR) [Suspect]
     Dosage: 2250 MG, QD
     Route: 048
     Dates: start: 20120911, end: 20121008
  3. VX-950 (TELAPREVIR) [Suspect]
     Dosage: 1500 MG, QD
     Route: 048
     Dates: start: 20121009, end: 20121126
  4. RIBAVIRIN [Suspect]
     Indication: CHRONIC HEPATITIS C
     Dosage: 600 MG, QD
     Route: 048
     Dates: start: 20120828, end: 20120904
  5. RIBAVIRIN [Suspect]
     Dosage: 600 MG, QD
     Route: 048
     Dates: start: 20120911, end: 20121015
  6. RIBAVIRIN [Suspect]
     Dosage: 400 MG, QD
     Route: 048
     Dates: start: 20121016, end: 20121105
  7. RIBAVIRIN [Suspect]
     Dosage: 200 MG, QD
     Route: 048
     Dates: start: 20121113, end: 20121203
  8. RIBAVIRIN [Suspect]
     Dosage: 200 MG, QD
     Route: 048
     Dates: start: 20121218, end: 20121224
  9. RIBAVIRIN [Suspect]
     Dosage: 200 MG, QD
     Route: 048
     Dates: start: 20130108, end: 20130114
  10. RIBAVIRIN [Suspect]
     Dosage: 400 MG, QD
     Route: 048
     Dates: start: 20130115, end: 20130121
  11. RIBAVIRIN [Suspect]
     Dosage: 600 MG, QD
     Route: 048
     Dates: start: 20130122
  12. PEGINTERFERON ALFA-2B [Suspect]
     Indication: CHRONIC HEPATITIS C
     Dosage: 1.5 ?G/KG, QW
     Route: 058
     Dates: start: 20120828, end: 20120904
  13. PEGINTERFERON ALFA-2B [Suspect]
     Dosage: 0.75 ?G/KG, QW
     Route: 058
     Dates: start: 20120911, end: 20121015
  14. PEGINTERFERON ALFA-2B [Suspect]
     Dosage: 1.0 ?G/KG, QW
     Route: 058
     Dates: start: 20121016, end: 20121203
  15. PEGINTERFERON ALFA-2B [Suspect]
     Dosage: 0.75 ?G/KG, QW
     Route: 058
     Dates: start: 20121218, end: 20121224
  16. PEGINTERFERON ALFA-2B [Suspect]
     Dosage: 100 ?G/BODY, QW
     Route: 058
     Dates: start: 20121225, end: 20130107
  17. PEGINTERFERON ALFA-2B [Suspect]
     Dosage: 0.4 ?G/KG, QW
     Route: 058
     Dates: start: 20130108, end: 20130128
  18. PEGINTERFERON ALFA-2B [Suspect]
     Dosage: 0.75 ?G/KG, QW
     Route: 058
     Dates: start: 20130129, end: 20130204
  19. PEGINTERFERON ALFA-2B [Suspect]
     Dosage: 0.4 ?G/KG, QW
     Route: 058
     Dates: start: 20130205
  20. AMOBAN [Concomitant]
     Dosage: 7.5 MG/DAY, PRN
     Route: 048
     Dates: start: 20120829
  21. ASVERIN [Concomitant]
     Dosage: 20 MG, QD
     Route: 048
     Dates: start: 20120903, end: 20120906
  22. MUCODYNE [Concomitant]
     Dosage: 500 MG, QD
     Route: 048
     Dates: start: 20120903, end: 20120906
  23. DEPAS [Concomitant]
     Dosage: 0.5 MG/DAY, PRN
     Route: 048
     Dates: start: 20120914, end: 20121015
  24. ZYLORIC [Concomitant]
     Dosage: 100 MG, QD
     Route: 048
     Dates: start: 20120918
  25. TAKEPRON [Concomitant]
     Dosage: 30 MG, QD
     Route: 048
     Dates: start: 20121002

REACTIONS (3)
  - Neutrophil count decreased [Recovered/Resolved]
  - Anaemia [Recovered/Resolved]
  - Neutrophil count decreased [Recovered/Resolved]
